FAERS Safety Report 19896559 (Version 1)
Quarter: 2021Q3

REPORT INFORMATION
  Report Type: Spontaneous
  Country: US (occurrence: US)
  Receive Date: 20210929
  Receipt Date: 20210929
  Transmission Date: 20211014
  Serious: No
  Sender: FDA-Public Use
  Company Number: US-OTSUKA-2020_019463

PATIENT
  Age: 24 Year
  Sex: Female

DRUGS (3)
  1. EMSAM [Concomitant]
     Active Substance: SELEGILINE
     Indication: MAJOR DEPRESSION
     Dosage: UNK
     Route: 065
  2. REXULTI [Suspect]
     Active Substance: BREXPIPRAZOLE
     Indication: MAJOR DEPRESSION
     Dosage: UNK (SINCE 9?10 MONTHS)
     Route: 065
  3. REXULTI [Suspect]
     Active Substance: BREXPIPRAZOLE
     Dosage: 1/2 OF 2 MG TABLET (TAPERING DOSE)
     Route: 065

REACTIONS (2)
  - Compulsive shopping [Not Recovered/Not Resolved]
  - Eating disorder [Not Recovered/Not Resolved]
